FAERS Safety Report 9158584 (Version 2)
Quarter: 2013Q2

REPORT INFORMATION
  Report Type: Spontaneous
  Country: IE (occurrence: IE)
  Receive Date: 20130312
  Receipt Date: 20130430
  Transmission Date: 20140414
  Serious: Yes (Disabling, Other)
  Sender: FDA-Public Use
  Company Number: IE-CELGENEUS-229-20785-13030285

PATIENT
  Age: 76 Year
  Sex: Female

DRUGS (8)
  1. THALIDOMIDE [Suspect]
     Indication: PLASMA CELL MYELOMA
     Route: 048
     Dates: start: 20120303, end: 20120413
  2. FRUMIL [Suspect]
     Indication: HYPERTENSION
     Dosage: 20MG/2.5MG
     Route: 065
     Dates: start: 20110721, end: 20120413
  3. FRUMIL [Suspect]
     Indication: FLUID RETENTION
  4. RAMIPRIL [Concomitant]
     Indication: HYPERTENSION
     Route: 065
     Dates: start: 20120410
  5. ASPIRINE [Concomitant]
     Indication: ANTIPLATELET THERAPY
     Dosage: 75 MILLIGRAM
     Route: 065
     Dates: start: 20130301
  6. PRESTIM [Concomitant]
     Indication: HYPERTENSION
     Dosage: 10MG/2.5MG
     Route: 065
     Dates: start: 20110721, end: 20120329
  7. LAXOSE [Concomitant]
     Indication: CONSTIPATION
     Dosage: 30 MILLILITER
     Route: 065
     Dates: start: 20120301, end: 20120401
  8. MOLAXOLE [Concomitant]
     Indication: CONSTIPATION
     Route: 065
     Dates: start: 20120301, end: 20120401

REACTIONS (1)
  - Fall [Recovered/Resolved]
